FAERS Safety Report 22265775 (Version 1)
Quarter: 2023Q2

REPORT INFORMATION
  Report Type: Report from Study
  Country: MX (occurrence: MX)
  Receive Date: 20230428
  Receipt Date: 20230428
  Transmission Date: 20230722
  Serious: Yes (Disabling)
  Sender: FDA-Public Use
  Company Number: MX-ABBVIE-4707970

PATIENT
  Age: 68 Year
  Sex: Female
  Weight: 70 kg

DRUGS (5)
  1. RINVOQ [Suspect]
     Active Substance: UPADACITINIB
     Indication: Rheumatoid arthritis
     Dosage: FORM STRENGTH: 15 MILLIGRAM
     Route: 048
     Dates: start: 20210920
  2. KARET [Concomitant]
     Indication: Hypothyroidism
  3. Dorixin [Concomitant]
     Indication: Pain
  4. METAMUCIL [Concomitant]
     Active Substance: PLANTAGO SEED
     Indication: Constipation
  5. NATULAX [Concomitant]
     Indication: Constipation

REACTIONS (13)
  - Arthralgia [Not Recovered/Not Resolved]
  - Liver function test increased [Recovering/Resolving]
  - Blood cholesterol increased [Not Recovered/Not Resolved]
  - Anxiety [Recovering/Resolving]
  - Muscular weakness [Recovering/Resolving]
  - Visual impairment [Not Recovered/Not Resolved]
  - Constipation [Unknown]
  - Body height decreased [Not Recovered/Not Resolved]
  - Drug ineffective [Not Recovered/Not Resolved]
  - Depression [Unknown]
  - Depressed mood [Unknown]
  - Gastric disorder [Not Recovered/Not Resolved]
  - Gamma-glutamyltransferase increased [Recovering/Resolving]

NARRATIVE: CASE EVENT DATE: 20220601
